FAERS Safety Report 24653572 (Version 2)
Quarter: 2024Q4

REPORT INFORMATION
  Report Type: Spontaneous
  Country: US (occurrence: US)
  Receive Date: 20241122
  Receipt Date: 20241122
  Transmission Date: 20250115
  Serious: Yes (Other)
  Sender: NOVO NORDISK
  Company Number: US-NOVOPROD-1144209

PATIENT
  Sex: Male

DRUGS (2)
  1. FIASP [Suspect]
     Active Substance: INSULIN ASPART
     Indication: Type 1 diabetes mellitus
     Dosage: UNK
     Route: 058
  2. TRESIBA [Suspect]
     Active Substance: INSULIN DEGLUDEC
     Indication: Type 1 diabetes mellitus
     Dosage: UNK
     Route: 058

REACTIONS (4)
  - Accidental overdose [Recovered/Resolved]
  - Blood glucose decreased [Recovered/Resolved]
  - Wrong product administered [Recovered/Resolved]
  - Product appearance confusion [Unknown]

NARRATIVE: CASE EVENT DATE: 20231119
